FAERS Safety Report 7724335-X (Version None)
Quarter: 2011Q3

REPORT INFORMATION
  Report Type: 
  Country: None (occurrence: None)
  Receive Date: 20110829
  Receipt Date: 20110816
  Transmission Date: 20111222
  Serious: Yes (Hospitalization)
  Sender: FDA-Public Use
  Company Number: US-1185612

PATIENT
  Age: 79 Year
  Sex: Male
  Weight: 82.5547 kg

DRUGS (2)
  1. ASPIRIN [Concomitant]
  2. TIMOLOL MALEATE [Suspect]
     Indication: GLAUCOMA
     Dosage: 1 GTT QD, OD OPHTHALMIC
     Route: 047
     Dates: start: 20110211, end: 20110312

REACTIONS (2)
  - EYE IRRITATION [None]
  - TRANSIENT ISCHAEMIC ATTACK [None]
